FAERS Safety Report 20458030 (Version 1)
Quarter: 2022Q1

REPORT INFORMATION
  Report Type: Spontaneous
  Country: PL (occurrence: PL)
  Receive Date: 20220211
  Receipt Date: 20220211
  Transmission Date: 20220424
  Serious: Yes (Other)
  Sender: FDA-Public Use
  Company Number: PL-AMGEN-POLSP2022019613

PATIENT

DRUGS (1)
  1. TRASTUZUMAB [Suspect]
     Active Substance: TRASTUZUMAB
     Indication: HER2 positive breast cancer
     Dosage: UNK
     Route: 065

REACTIONS (10)
  - Mitral valve incompetence [Unknown]
  - Tricuspid valve incompetence [Unknown]
  - Aortic valve incompetence [Unknown]
  - Ventricular arrhythmia [Unknown]
  - Atrial fibrillation [Unknown]
  - Cardiac valve sclerosis [Unknown]
  - Cardiac failure [Unknown]
  - Dilatation atrial [Unknown]
  - Dilatation ventricular [Unknown]
  - Ejection fraction decreased [Unknown]
